FAERS Safety Report 6725938 (Version 2)
Quarter: 2012Q4

REPORT INFORMATION
  Report Type: 
  Country: US (occurrence: US)
  Receive Date: 20080813
  Receipt Date: 20121031
  Transmission Date: 20130627
  Serious: Yes (Life-Threatening, Hospitalization, Other)
  Sender: FDA-Public Use
  Company Number: US-ASTRAZENECA-2008UW15622

PATIENT
  Age: 42 Year
  Sex: Female
  Weight: 95.3 kg

DRUGS (16)
  1. PRILOSEC [Suspect]
     Indication: GASTROOESOPHAGEAL REFLUX DISEASE
     Route: 048
     Dates: end: 20051230
  2. PRILOSEC [Interacting]
     Indication: GASTROOESOPHAGEAL REFLUX DISEASE
     Route: 048
  3. SEROQUEL [Interacting]
     Indication: BIPOLAR DISORDER
     Route: 048
     Dates: start: 2004
  4. POTASSIUM [Interacting]
     Dosage: 10 MED
     Route: 065
  5. FUROSEMIDE [Interacting]
     Route: 048
  6. MECLIZINE [Interacting]
     Route: 065
  7. ERYTHROMYCIN [Interacting]
     Route: 065
  8. UNSPECIFIED DRUG [Interacting]
     Indication: THYROID DISORDER
     Route: 065
  9. NASONEX [Interacting]
     Route: 065
  10. LORAZEPAM [Interacting]
     Route: 065
  11. TOPAMAX [Interacting]
     Indication: GRAND MAL CONVULSION
     Route: 065
  12. PROMETHAZINE [Suspect]
     Route: 065
  13. HYDROCODONE [Suspect]
     Route: 065
  14. AZITHROMYCIN [Suspect]
     Route: 065
  15. HYDROCORTISONE [Suspect]
     Route: 065
  16. UNSPECIFIED MEDICATIONS [Suspect]
     Route: 065

REACTIONS (16)
  - Drug interaction [Unknown]
  - Overdose [Unknown]
  - Coma [Unknown]
  - Grand mal convulsion [Unknown]
  - Grand mal convulsion [Not Recovered/Not Resolved]
  - Electroencephalogram abnormal [Unknown]
  - Hypertension [Unknown]
  - Cardiac failure [Unknown]
  - Calcinosis [Unknown]
  - Vertigo [Unknown]
  - Hearing impaired [Unknown]
  - Vomiting [Unknown]
  - Nausea [Unknown]
  - Adverse event [Unknown]
  - Weight decreased [Unknown]
  - Drug hypersensitivity [Unknown]
